FAERS Safety Report 14690804 (Version 1)
Quarter: 2018Q1

REPORT INFORMATION
  Report Type: Spontaneous
  Country: JP (occurrence: JP)
  Receive Date: 20180328
  Receipt Date: 20180328
  Transmission Date: 20180509
  Serious: Yes (Hospitalization, Other)
  Sender: FDA-Public Use
  Company Number: JP-PFIZER INC-2018120254

PATIENT
  Age: 85 Year
  Sex: Female

DRUGS (1)
  1. RHEUMATREX [Suspect]
     Active Substance: METHOTREXATE SODIUM
     Dosage: 4 MG (2 CAPSULES), WEEKLY
     Route: 048

REACTIONS (2)
  - Cerebral haemorrhage [Unknown]
  - Renal impairment [Unknown]
